FAERS Safety Report 5786657-1 (Version None)
Quarter: 2008Q2

REPORT INFORMATION
  Report Type: 
  Country: None (occurrence: None)
  Receive Date: 20080624
  Receipt Date: 20080609
  Transmission Date: 20081010
  Serious: Yes (Other)
  Sender: FDA-Public Use
  Company Number: FR-GENENTECH-263052

PATIENT
  Age: 64 Year
  Sex: Female

DRUGS (7)
  1. MABTHERA [Suspect]
     Indication: RHEUMATOID ARTHRITIS
     Dosage: 1 G, Q15D
  2. PREDNISONE [Concomitant]
     Indication: DRUG USE FOR UNKNOWN INDICATION
     Dosage: 10 MG, QD
     Dates: start: 20020101
  3. METHOTREXATE [Concomitant]
     Indication: DRUG USE FOR UNKNOWN INDICATION
     Dosage: 15 MG, 1/WEEK
     Dates: start: 20020101
  4. LEFLUNOMIDE [Concomitant]
     Indication: DRUG USE FOR UNKNOWN INDICATION
     Dates: start: 20020101
  5. KINERET [Concomitant]
     Indication: DRUG USE FOR UNKNOWN INDICATION
     Dates: start: 20020101
  6. CEFPODOXIME PROXETIL [Concomitant]
     Indication: DRUG USE FOR UNKNOWN INDICATION
  7. METHYLPREDNISONE (UNK INGREDIENTS) [Concomitant]
     Indication: PREMEDICATION
     Dosage: 100 MG, UNK

REACTIONS (1)
  - CRYPTOGENIC ORGANISING PNEUMONIA [None]
